FAERS Safety Report 24259598 (Version 3)
Quarter: 2025Q3

REPORT INFORMATION
  Report Type: Spontaneous
  Country: JP (occurrence: JP)
  Receive Date: 20240828
  Receipt Date: 20250803
  Transmission Date: 20251021
  Serious: Yes (Death, Life-Threatening, Hospitalization, Other)
  Sender: ALEXION PHARMACEUTICALS
  Company Number: 2024A192473

PATIENT
  Age: 7 Decade
  Sex: Female

DRUGS (4)
  1. FASLODEX [Suspect]
     Active Substance: FULVESTRANT
     Indication: Breast cancer
  2. FASLODEX [Suspect]
     Active Substance: FULVESTRANT
  3. FASLODEX [Suspect]
     Active Substance: FULVESTRANT
     Dates: start: 20240722, end: 20240722
  4. TRUQAP [Suspect]
     Active Substance: CAPIVASERTIB
     Dates: start: 20240722, end: 20240727

REACTIONS (4)
  - Hyperglycaemia [Recovering/Resolving]
  - Respiratory disorder [Fatal]
  - General physical health deterioration [Fatal]
  - Ketoacidosis [Recovering/Resolving]

NARRATIVE: CASE EVENT DATE: 20240727
